FAERS Safety Report 7448472-2 (Version None)
Quarter: 2011Q2

REPORT INFORMATION
  Report Type: 
  Country: None (occurrence: None)
  Receive Date: 20110429
  Receipt Date: 20100610
  Transmission Date: 20111010
  Serious: No
  Sender: FDA-Public Use
  Company Number: US-ASTRAZENECA-2010SE27530

PATIENT
  Age: 77 Year
  Sex: Female

DRUGS (2)
  1. NEXIUM [Suspect]
     Route: 048
     Dates: start: 20090101
  2. NEXIUM [Suspect]
     Route: 048
     Dates: start: 20040101, end: 20090101

REACTIONS (2)
  - REFLUX OESOPHAGITIS [None]
  - OSTEOPENIA [None]
